FAERS Safety Report 8008325-8 (Version None)
Quarter: 2011Q4

REPORT INFORMATION
  Report Type: 
  Country: None (occurrence: None)
  Receive Date: 20111227
  Receipt Date: 20111219
  Transmission Date: 20120403
  Serious: Yes (Hospitalization)
  Sender: FDA-Public Use
  Company Number: BR-ROCHE-772162

PATIENT
  Sex: Female
  Weight: 80 kg

DRUGS (16)
  1. ATORVASTATIN [Concomitant]
  2. CLOPIDOGREL [Concomitant]
  3. LIPLESS [Concomitant]
  4. FUROSEMIDE [Concomitant]
  5. CHLOROQUINE [Concomitant]
  6. PREDNISONE [Concomitant]
  7. ALLOPURINOL [Concomitant]
  8. MABTHERA [Suspect]
     Indication: PRODUCT USED FOR UNKNOWN INDICATION
     Dates: start: 20100201, end: 20100301
  9. NEBIVOLOL HCL [Concomitant]
  10. ACETYLSALICYLIC ACID SRT [Concomitant]
  11. NARCARICIN [Concomitant]
     Dosage: REPORTED AS NARCARICINA
  12. HALOPERIDOL [Concomitant]
  13. PREDNISONE [Concomitant]
  14. CITALOPRAM HYDROBROMIDE [Concomitant]
  15. LEXOTAN [Concomitant]
  16. FORMOTEROL FUMARATE [Concomitant]

REACTIONS (4)
  - EMPHYSEMA [None]
  - ACUTE MYOCARDIAL INFARCTION [None]
  - DRUG HYPERSENSITIVITY [None]
  - MYOCARDIAL INFARCTION [None]
